FAERS Safety Report 5444434-5 (Version None)
Quarter: 2007Q3

REPORT INFORMATION
  Report Type: 
  Country: None (occurrence: None)
  Receive Date: 20070831
  Receipt Date: 20070820
  Transmission Date: 20080115
  Serious: Yes (Other)
  Sender: FDA-Public Use
  Company Number: OSCN-NO-0708L-0322

PATIENT
  Age: 73 Year
  Sex: Female

DRUGS (1)
  1. OMNISCAN [Suspect]
     Indication: DRUG USE FOR UNKNOWN INDICATION
     Dosage: 15 ML, SINGLE DOSE; , 15 ML, SINGLE DOSE, 15 ML, SINGLE, 15 ML, SINGLE DOSE, 15 ML, SINGLE DOSE

REACTIONS (1)
  - NEPHROGENIC SYSTEMIC FIBROSIS [None]
